FAERS Safety Report 7156656-6 (Version None)
Quarter: 2010Q4

REPORT INFORMATION
  Report Type: 
  Country: None (occurrence: None)
  Receive Date: 20101214
  Receipt Date: 20101203
  Transmission Date: 20110411
  Serious: Yes (Other)
  Sender: FDA-Public Use
  Company Number: US-JNJFOC-20101202466

PATIENT
  Sex: Female

DRUGS (3)
  1. REMICADE [Suspect]
     Indication: CROHN'S DISEASE
     Route: 042
  2. REMICADE [Suspect]
     Route: 042
  3. PAIN MEDICATION [Concomitant]
     Indication: PAIN

REACTIONS (4)
  - ARTHRALGIA [None]
  - MUSCULAR WEAKNESS [None]
  - MYALGIA [None]
  - TOOTH LOSS [None]
